FAERS Safety Report 7149415-1 (Version None)
Quarter: 2010Q4

REPORT INFORMATION
  Report Type: 
  Country: None (occurrence: None)
  Receive Date: 20101209
  Receipt Date: 20101129
  Transmission Date: 20110411
  Serious: Yes (Hospitalization, Other)
  Sender: FDA-Public Use
  Company Number: NL-ABBOTT-09P-114-0608091-00

PATIENT
  Sex: Male
  Weight: 75 kg

DRUGS (10)
  1. LUCRIN DEPOT 11.25 MG [Suspect]
     Indication: PROSTATE CANCER METASTATIC
     Route: 058
     Dates: start: 20070426
  2. METOPROLOL [Concomitant]
     Indication: HYPERTENSION
     Route: 048
     Dates: start: 20090501
  3. METOPROLOL [Concomitant]
     Indication: BLOOD PRESSURE DECREASED
  4. TAMSULOSINE [Concomitant]
     Indication: POLLAKIURIA
     Route: 048
     Dates: start: 20081101
  5. CARBASALATE CALCIUM [Concomitant]
     Indication: ANTICOAGULANT THERAPY
     Route: 048
     Dates: start: 20100101
  6. DICLOFENAC SODIUM [Concomitant]
     Indication: PAIN
     Dates: start: 20090501
  7. DIPYRIDAMOL [Concomitant]
     Indication: ANTICOAGULANT THERAPY
     Dates: start: 20100101
  8. LOPERAMIDE [Concomitant]
     Indication: DIARRHOEA
     Dates: start: 20100401
  9. OMEPRAZOLE [Concomitant]
     Indication: PROPHYLAXIS AGAINST GASTROINTESTINAL ULCER
     Dates: start: 20090501
  10. OMEPRAZOLE [Concomitant]

REACTIONS (5)
  - CEREBROVASCULAR ACCIDENT [None]
  - DIARRHOEA [None]
  - FATIGUE [None]
  - HOT FLUSH [None]
  - TRANSIENT ISCHAEMIC ATTACK [None]
